FAERS Safety Report 9191225 (Version 4)
Quarter: 2014Q1

REPORT INFORMATION
  Report Type: Report from Study
  Country: US (occurrence: US)
  Receive Date: 20130326
  Receipt Date: 20140328
  Transmission Date: 20141002
  Serious: Yes (Other)
  Sender: FDA-Public Use
  Company Number: US-UCBSA-081245

PATIENT
  Age: 26 Year
  Sex: Female

DRUGS (24)
  1. KEPPRA XR [Suspect]
     Indication: EPILEPSY
     Dosage: 1500 MG
     Dates: end: 20120911
  2. KEPPRA XR [Suspect]
     Indication: EPILEPSY
     Dosage: DAILY DOSE: 2000 MG
     Dates: start: 20120911
  3. KEPPRA XR [Suspect]
     Indication: EPILEPSY
     Dosage: DAILY DOSE: 2500 MG, EVERY BEDTIME
     Dates: start: 2013
  4. FOLBIC ACID [Concomitant]
     Indication: PREGNANCY
     Route: 048
     Dates: start: 20120229
  5. DHA CHEWS [Concomitant]
     Dosage: 1 DOSE
     Dates: start: 20120725
  6. PROZAC [Concomitant]
     Indication: ANXIETY
  7. PROZAC [Concomitant]
     Indication: ANXIETY
     Route: 048
  8. PRENATAL VITAMINS [Concomitant]
  9. CALCIUM [Concomitant]
     Route: 048
     Dates: start: 20120725
  10. TEGRETOL [Concomitant]
     Indication: EPILEPSY
  11. KLONOPIN [Concomitant]
     Indication: EPILEPSY
  12. CLOZARIL [Concomitant]
     Indication: EPILEPSY
  13. VALIUM [Concomitant]
     Indication: EPILEPSY
  14. NEURONTIN [Concomitant]
     Indication: EPILEPSY
  15. LAMICTAL [Concomitant]
     Indication: EPILEPSY
  16. TRILEPTAL [Concomitant]
     Indication: EPILEPSY
  17. PHENOBARBITAL [Concomitant]
     Indication: EPILEPSY
  18. DILANTIN [Concomitant]
     Indication: EPILEPSY
     Dosage: 200MG QD ALTERNATING DOSE OF 300 QD
  19. TOPAMAX [Concomitant]
     Indication: EPILEPSY
  20. TRIDIONE [Concomitant]
     Indication: EPILEPSY
  21. DEPAKOTE [Concomitant]
     Indication: EPILEPSY
  22. ZYRTEC [Concomitant]
     Dosage: STRENGTH: 10MG
  23. CONCERTA [Concomitant]
     Dosage: STRENGTH: 36MG
  24. ADVIL [Concomitant]
     Indication: MUSCLE SPASMS

REACTIONS (5)
  - Breech presentation [Recovered/Resolved]
  - Polymorphic eruption of pregnancy [Unknown]
  - Blepharospasm [Unknown]
  - Stress [Unknown]
  - Pregnancy [Recovered/Resolved]
